FAERS Safety Report 9914813 (Version 1)
Quarter: 2014Q1

REPORT INFORMATION
  Report Type: Spontaneous
  Country: FR (occurrence: FR)
  Receive Date: 20140220
  Receipt Date: 20140220
  Transmission Date: 20141002
  Serious: Yes (Life-Threatening)
  Sender: FDA-Public Use
  Company Number: PHHY2014FR020584

PATIENT
  Age: 63 Year
  Sex: Male
  Weight: 100 kg

DRUGS (3)
  1. ZOMETA [Suspect]
     Dosage: UNK UKN, UNK
     Route: 042
     Dates: start: 20140112
  2. PACLITAXEL ACTAVIS [Suspect]
     Indication: NON-SMALL CELL LUNG CANCER METASTATIC
     Dosage: 80 MG/M2, BY CYCLE
     Route: 042
     Dates: start: 20140110
  3. AVASTIN [Suspect]
     Dosage: 7.5 MG/KG, BY CYCLE
     Route: 042
     Dates: start: 20140110

REACTIONS (5)
  - Respiratory failure [Recovered/Resolved]
  - Cyanosis [Recovered/Resolved]
  - Hypoxia [Recovered/Resolved]
  - Bronchospasm [Recovered/Resolved]
  - Pyrexia [Recovered/Resolved]
